FAERS Safety Report 4863923-5 (Version None)
Quarter: 2005Q4

REPORT INFORMATION
  Report Type: 
  Country: None (occurrence: None)
  Receive Date: 20051219
  Receipt Date: 20051207
  Transmission Date: 20060501
  Serious: Yes (Death)
  Sender: FDA-Public Use
  Company Number: 2005US001598

PATIENT
  Age: 72 Year
  Sex: Male

DRUGS (3)
  1. ADENOSCAN [Suspect]
     Indication: SCAN MYOCARDIAL PERFUSION
     Dosage: 38.6 MG, IV NOS
     Route: 042
     Dates: start: 20051018, end: 20051018
  2. THALLOUS CHLORIDE TL 201 [Suspect]
     Indication: SCAN MYOCARDIAL PERFUSION
     Dosage: 3.1 MCI, IV NOS
     Route: 042
     Dates: start: 20051018, end: 20051018
  3. CARDIOLITE [Concomitant]

REACTIONS (1)
  - RESPIRATORY ARREST [None]
